FAERS Safety Report 21262032 (Version 5)
Quarter: 2023Q4

REPORT INFORMATION
  Report Type: Report from Study
  Country: AU (occurrence: AU)
  Receive Date: 20220827
  Receipt Date: 20231113
  Transmission Date: 20240110
  Serious: Yes (Other)
  Sender: FDA-Public Use
  Company Number: AU-NOVARTISPH-NVSC2022AU185808

PATIENT
  Sex: Female

DRUGS (6)
  1. ARZERRA [Suspect]
     Active Substance: OFATUMUMAB
     Indication: Chronic inflammatory demyelinating polyradiculoneuropathy
     Dosage: 1000 MG
     Route: 065
     Dates: start: 202010
  2. ARZERRA [Suspect]
     Active Substance: OFATUMUMAB
     Indication: Sjogren^s syndrome
     Dosage: 700 MG, BID (IN MAY, 700MG X2, 2 WEEKS)
     Route: 065
  3. ARZERRA [Suspect]
     Active Substance: OFATUMUMAB
     Indication: Polymyositis
  4. RITUXIMAB [Suspect]
     Active Substance: RITUXIMAB
     Indication: Chronic inflammatory demyelinating polyradiculoneuropathy
     Dosage: UNK
     Route: 065
  5. RITUXIMAB [Suspect]
     Active Substance: RITUXIMAB
     Indication: Sjogren^s syndrome
  6. RITUXIMAB [Suspect]
     Active Substance: RITUXIMAB
     Indication: Polymyositis

REACTIONS (13)
  - Condition aggravated [Not Recovered/Not Resolved]
  - Sjogren^s syndrome [Not Recovered/Not Resolved]
  - Chronic inflammatory demyelinating polyradiculoneuropathy [Not Recovered/Not Resolved]
  - Polymyositis [Not Recovered/Not Resolved]
  - CD19 lymphocytes increased [Not Recovered/Not Resolved]
  - B-lymphocyte count increased [Not Recovered/Not Resolved]
  - Asthenia [Not Recovered/Not Resolved]
  - Vertigo labyrinthine [Not Recovered/Not Resolved]
  - Arthralgia [Not Recovered/Not Resolved]
  - Myalgia [Not Recovered/Not Resolved]
  - Chillblains [Not Recovered/Not Resolved]
  - Headache [Not Recovered/Not Resolved]
  - Anaphylactic reaction [Unknown]
